FAERS Safety Report 9514070 (Version 1)
Quarter: 2013Q3

REPORT INFORMATION
  Report Type: Spontaneous
  Country: US (occurrence: US)
  Receive Date: 20130910
  Receipt Date: 20130910
  Transmission Date: 20140515
  Serious: No
  Sender: FDA-Public Use
  Company Number: US-ASTRAZENECA-2013SE49519

PATIENT
  Sex: Female

DRUGS (2)
  1. SYMBICORT [Suspect]
     Indication: ASTHMA
     Dosage: 160-4.5 MCG UNKNOWN
     Route: 055
     Dates: start: 20130626
  2. RESCUE INHALER [Concomitant]
     Indication: ASTHMA

REACTIONS (4)
  - Foreign body aspiration [Unknown]
  - Illiteracy [Unknown]
  - Dysgeusia [Unknown]
  - Cough [Unknown]
